FAERS Safety Report 4564097-0 (Version None)
Quarter: 2005Q1

REPORT INFORMATION
  Report Type: 
  Country: None (occurrence: None)
  Receive Date: 20050128
  Receipt Date: 20050111
  Transmission Date: 20050727
  Serious: Yes (Life-Threatening, Hospitalization, Disabling, Other)
  Sender: FDA-Public Use
  Company Number: US-MERCK-0501USA01024

PATIENT
  Age: 71 Year
  Sex: Male

DRUGS (3)
  1. VIOXX [Suspect]
     Indication: OSTEOARTHRITIS
     Route: 048
     Dates: start: 20020409, end: 20040801
  2. VIOXX [Suspect]
     Indication: BURSITIS
     Route: 048
     Dates: start: 20020409, end: 20040801
  3. ALTACE [Concomitant]
     Route: 065

REACTIONS (10)
  - CARDIAC ARREST [None]
  - CORONARY ARTERY OCCLUSION [None]
  - MITRAL VALVE DISEASE [None]
  - MYOCARDIAL INFARCTION [None]
  - NEPHROLITHIASIS [None]
  - OSTEOARTHRITIS [None]
  - PLANTAR FASCIITIS [None]
  - ROTATOR CUFF SYNDROME [None]
  - TENDONITIS [None]
  - URINARY TRACT INFECTION [None]
